FAERS Safety Report 4459319-0 (Version None)
Quarter: 2004Q3

REPORT INFORMATION
  Report Type: 
  Country: None (occurrence: None)
  Receive Date: 20040923
  Receipt Date: 20040923
  Transmission Date: 20050211
  Serious: Yes (Hospitalization)
  Sender: FDA-Public Use
  Company Number: None

PATIENT
  Age: 78 Year
  Sex: Male
  Weight: 77.7 kg

DRUGS (1)
  1. AMIODARONE  200MG [Suspect]
     Indication: ATRIAL FIBRILLATION
     Dosage: 400 MG QDAY ORAL
     Route: 048
     Dates: start: 20030616, end: 20040515

REACTIONS (3)
  - PANCREATITIS ACUTE [None]
  - PULMONARY FIBROSIS [None]
  - PULMONARY FUNCTION TEST DECREASED [None]
